FAERS Safety Report 23252602 (Version 1)
Quarter: 2023Q4

REPORT INFORMATION
  Report Type: Spontaneous
  Country: US (occurrence: None)
  Receive Date: 20231201
  Receipt Date: 20231201
  Transmission Date: 20240110
  Serious: Yes (Hospitalization, Disabling)
  Sender: FDA-Public Use
  Company Number: None

PATIENT
  Age: 89 Year
  Sex: Male
  Weight: 60.7 kg

DRUGS (2)
  1. HALOPERIDOL [Suspect]
     Active Substance: HALOPERIDOL
     Dosage: 2 MG BID PO
     Dates: start: 20230619, end: 20230930
  2. OLANZAPINE [Suspect]
     Active Substance: OLANZAPINE
     Dosage: 5 MG PRN PO
     Dates: start: 20230619, end: 20230930

REACTIONS (8)
  - Muscle rigidity [None]
  - Dystonia [None]
  - Tardive dyskinesia [None]
  - Mental disorder [None]
  - Colitis [None]
  - Sepsis [None]
  - Aggression [None]
  - Parkinsonism [None]

NARRATIVE: CASE EVENT DATE: 20230930
